FAERS Safety Report 19089435 (Version 2)
Quarter: 2021Q2

REPORT INFORMATION
  Report Type: Report from Study
  Country: TZ (occurrence: TZ)
  Receive Date: 20210403
  Receipt Date: 20210512
  Transmission Date: 20210717
  Serious: Yes (Death, Other)
  Sender: FDA-Public Use
  Company Number: TZ-CIPLA LTD.-2021TZ02459

PATIENT

DRUGS (3)
  1. LOPINAVIR/RITONAVIR [Suspect]
     Active Substance: LOPINAVIR\RITONAVIR
     Indication: HIV INFECTION
     Dosage: 5 DOSAGE FORM, BID (200 MG/50 MG BID)
     Route: 048
     Dates: start: 20171103, end: 20180102
  2. ABACAVIR/LAMIVUDINE [Suspect]
     Active Substance: ABACAVIR\LAMIVUDINE
     Indication: HIV INFECTION
     Dosage: 2.5 DOSAGE FORM, BID (150 MG/75 MG BID DAILY)
     Route: 048
     Dates: start: 20171103, end: 20180102
  3. BACTRIM [Concomitant]
     Active Substance: SULFAMETHOXAZOLE\TRIMETHOPRIM
     Indication: PROPHYLAXIS
     Dosage: 480 MG DAILY
     Route: 065
     Dates: start: 20171103, end: 20180101

REACTIONS (1)
  - Meningitis [None]

NARRATIVE: CASE EVENT DATE: 20180101
